FAERS Safety Report 4482151-9 (Version None)
Quarter: 2004Q4

REPORT INFORMATION
  Report Type: 
  Country: None (occurrence: None)
  Receive Date: 20041020
  Receipt Date: 20041011
  Transmission Date: 20050328
  Serious: Yes (Other)
  Sender: FDA-Public Use
  Company Number: 2004-09-0314

PATIENT
  Age: 11 Week
  Sex: Female

DRUGS (1)
  1. INTRON A [Suspect]
     Indication: HAEMANGIOMA
     Dosage: 1.2 MIU QD

REACTIONS (1)
  - SPASTIC PARALYSIS [None]
